FAERS Safety Report 16723474 (Version 1)
Quarter: 2019Q3

REPORT INFORMATION
  Report Type: Spontaneous
  Country: DE (occurrence: DE)
  Receive Date: 20190821
  Receipt Date: 20190821
  Transmission Date: 20191005
  Serious: Yes (Hospitalization)
  Sender: FDA-Public Use
  Company Number: DE-TEVA-2019-DE-1094033

PATIENT
  Age: 86 Year
  Sex: Male

DRUGS (17)
  1. RAMIPRIL. [Concomitant]
     Active Substance: RAMIPRIL
     Dosage: 2.5 MG, 1-0-1-0
  2. SALBUTAMOL [Concomitant]
     Active Substance: ALBUTEROL
     Dosage: NK
     Route: 055
  3. IPRATROPIUMBROMID [Concomitant]
     Active Substance: IPRATROPIUM BROMIDE
     Dosage: NK , 1-1-1-0
     Route: 055
  4. TAMSULOSIN [Concomitant]
     Active Substance: TAMSULOSIN
     Dosage: 0.4 MG, 1-0-0-0
  5. BISACODYL. [Concomitant]
     Active Substance: BISACODYL
  6. METAMIZOL [Concomitant]
     Active Substance: METAMIZOLE SODIUM
  7. TORASEMID [Concomitant]
     Active Substance: TORSEMIDE
     Dosage: 10 MG, 1-0-0-0
  8. PREDNISOLON [Concomitant]
     Active Substance: PREDNISOLONE
     Dosage: 20 MG, 1-0-0-0
  9. CLOPIDOGRELL (CLOPIDOGREL) [Suspect]
     Active Substance: CLOPIDOGREL BISULFATE
     Dosage: 75 MG, 1-0-0-0
  10. COLECALCIFEROL [Concomitant]
     Active Substance: CHOLECALCIFEROL
     Dosage: 1000 IE, 1-0-0-0
  11. LOPERAMIDE [Concomitant]
     Active Substance: LOPERAMIDE
     Dosage: IF NECESSARY (SHORTNESS OF BREATH)
  12. ACETYLCYSTEINE. [Concomitant]
     Active Substance: ACETYLCYSTEINE
     Dosage: 200 MG, 1-0-1-0
  13. CALCIUM CARBONATE W/COLECALCIFEROL [Concomitant]
     Active Substance: CALCIUM CARBONATE\CHOLECALCIFEROL
     Dosage: NK MG, 1-0-0-0
  14. FOLIC ACID. [Concomitant]
     Active Substance: FOLIC ACID
     Dosage: 5 MG, 1-0-0-0
  15. KALIUMCITRAT [Concomitant]
     Dosage: NK MG, 1-0-0-0
  16. PANTOPRAZOL [Concomitant]
     Active Substance: PANTOPRAZOLE SODIUM
     Dosage: 40 MG, 1-0-1-0
  17. TIOTROPIUMBROMID/OLODATEROL [Concomitant]
     Dosage: NK HUB, 2-0-0-0
     Route: 055

REACTIONS (3)
  - General physical health deterioration [Unknown]
  - Dizziness [Unknown]
  - Dyspnoea exertional [Unknown]
